FAERS Safety Report 8739508 (Version 4)
Quarter: 2012Q4

REPORT INFORMATION
  Report Type: 
  Country: FR (occurrence: FR)
  Receive Date: 20120823
  Receipt Date: 20120904
  Transmission Date: 20130627
  Serious: Yes (Hospitalization, Other)
  Sender: FDA-Public Use
  Company Number: FR-PFIZER INC-2012200342

PATIENT
  Age: 53 Year
  Sex: Male

DRUGS (6)
  1. TAHOR [Suspect]
     Dosage: 1 DF, 1x/day
     Route: 048
     Dates: start: 20120726, end: 20120803
  2. TAVANIC [Suspect]
     Indication: ANTIBIOTIC THERAPY
     Dosage: 500 mg, 2x/day
     Route: 048
     Dates: start: 20120724, end: 20120801
  3. PLAVIX [Concomitant]
     Dosage: 75
  4. AMLOR [Concomitant]
     Dosage: 5
  5. AUGMENTIN [Concomitant]
     Indication: SEPSIS
     Dosage: 1 g, 3x/day
     Dates: end: 20120724
  6. ROCEPHINE [Concomitant]
     Indication: SEPSIS
     Dosage: UNK
     Dates: start: 20120724

REACTIONS (9)
  - Cell death [Recovered/Resolved]
  - Cholestasis [Recovered/Resolved]
  - Hepatomegaly [Recovered/Resolved]
  - Hepatic enzyme increased [Recovered/Resolved]
  - Pneumoperitoneum [Recovered/Resolved]
  - Thrombocytosis [Recovered/Resolved]
  - Haemoglobin decreased [Recovered/Resolved]
  - C-reactive protein increased [Unknown]
  - Creatinine renal clearance decreased [Unknown]
